FAERS Safety Report 9683791 (Version 2)
Quarter: 2013Q4

REPORT INFORMATION
  Report Type: Spontaneous
  Country: ES (occurrence: ES)
  Receive Date: 20131112
  Receipt Date: 20131209
  Transmission Date: 20140711
  Serious: Yes (Death)
  Sender: FDA-Public Use
  Company Number: ES-BRISTOL-MYERS SQUIBB COMPANY-19795897

PATIENT
  Age: 86 Year
  Sex: Male

DRUGS (12)
  1. ELIQUIS [Suspect]
     Indication: ATRIAL FIBRILLATION
     Route: 048
     Dates: start: 20130926, end: 20131027
  2. ZOLPIDEM [Concomitant]
  3. ZYLORIC [Concomitant]
  4. VESICARE [Concomitant]
  5. ATORVASTATIN [Concomitant]
  6. CARDURAN [Concomitant]
  7. NASACOR [Concomitant]
  8. OMEPRAZOLE [Concomitant]
  9. TRANGOREX [Concomitant]
  10. EMCONCOR [Concomitant]
  11. CAPTOPRIL [Concomitant]
  12. SEGURIL [Concomitant]

REACTIONS (2)
  - Haemorrhage intracranial [Fatal]
  - Fall [Unknown]
